FAERS Safety Report 17586773 (Version 1)
Quarter: 2020Q1

REPORT INFORMATION
  Report Type: Spontaneous
  Country: GB (occurrence: GB)
  Receive Date: 20200326
  Receipt Date: 20200326
  Transmission Date: 20200409
  Serious: Yes (Hospitalization)
  Sender: FDA-Public Use
  Company Number: GB-PFIZER INC-2020127163

PATIENT
  Age: 35 Year
  Sex: Female

DRUGS (10)
  1. FENTANYL. [Suspect]
     Active Substance: FENTANYL
     Dosage: 100 UG, UNK
  2. DEXAMETHASONE. [Concomitant]
     Active Substance: DEXAMETHASONE
     Dosage: UNK
  3. PARECOXIB [Concomitant]
     Active Substance: PARECOXIB
     Dosage: UNK
  4. DESFLURANE. [Suspect]
     Active Substance: DESFLURANE
     Dosage: UNK
  5. ATRACURIUM BESILATE [Suspect]
     Active Substance: ATRACURIUM BESYLATE
     Dosage: 35 MG, UNK
  6. ONDANSETRON [Concomitant]
     Active Substance: ONDANSETRON
     Dosage: UNK
  7. MAGNESIUM [Concomitant]
     Active Substance: MAGNESIUM
     Dosage: UNK
  8. GLYCOPYRROLATE-NEOSTIGMINE [Concomitant]
     Active Substance: GLYCOPYRROLATE\NEOSTIGMINE
     Dosage: UNK
  9. PROPOFOL. [Suspect]
     Active Substance: PROPOFOL
     Dosage: 200 MG, UNK
  10. PARACETAMOL [Concomitant]
     Active Substance: ACETAMINOPHEN
     Dosage: UNK

REACTIONS (1)
  - Seizure [Unknown]
